FAERS Safety Report 12934648 (Version 3)
Quarter: 2019Q3

REPORT INFORMATION
  Report Type: Spontaneous
  Country: GR (occurrence: GR)
  Receive Date: 20161111
  Receipt Date: 20190704
  Transmission Date: 20191004
  Serious: Yes (Other)
  Sender: FDA-Public Use
  Company Number: PHHY2016GR152540

PATIENT
  Age: 47 Year
  Sex: Male

DRUGS (3)
  1. BEVACIZUMAB. [Suspect]
     Active Substance: BEVACIZUMAB
     Indication: LUNG ADENOCARCINOMA
     Dosage: UNK
     Route: 065
     Dates: start: 201306, end: 201409
  2. PEMETREXED. [Suspect]
     Active Substance: PEMETREXED
     Indication: LUNG ADENOCARCINOMA
     Route: 065
  3. ZOLEDRONATE [Suspect]
     Active Substance: ZOLEDRONIC ACID
     Indication: LUNG ADENOCARCINOMA
     Dosage: UNK
     Route: 042
     Dates: start: 201306, end: 201407

REACTIONS (13)
  - Trismus [Recovering/Resolving]
  - Pain in jaw [Recovering/Resolving]
  - Gingival swelling [Recovering/Resolving]
  - Osteonecrosis of jaw [Recovering/Resolving]
  - Periodontal disease [Recovering/Resolving]
  - Toothache [Recovering/Resolving]
  - Radiolucency around implant [Recovering/Resolving]
  - Bone pain [Recovering/Resolving]
  - Exposed bone in jaw [Recovering/Resolving]
  - Ligament disorder [Recovering/Resolving]
  - Face and mouth X-ray abnormal [Recovering/Resolving]
  - Loose tooth [Recovering/Resolving]
  - Osteonecrosis [Recovering/Resolving]

NARRATIVE: CASE EVENT DATE: 201403
